FAERS Safety Report 24298098 (Version 1)
Quarter: 2024Q3

REPORT INFORMATION
  Report Type: Spontaneous
  Country: CN (occurrence: CN)
  Receive Date: 20240909
  Receipt Date: 20240909
  Transmission Date: 20241017
  Serious: Yes (Other)
  Sender: PFIZER
  Company Number: CN-PFIZER INC-PV202400116744

PATIENT
  Age: 78 Year
  Sex: Female
  Weight: 40.5 kg

DRUGS (4)
  1. NIRMATRELVIR\RITONAVIR [Suspect]
     Active Substance: NIRMATRELVIR\RITONAVIR
     Indication: COVID-19 treatment
     Dosage: [NIRMATRELVIR 300 MG]/[RITONAVIR 100 MG]; 2X/DAY
     Route: 048
     Dates: start: 20240828, end: 20240830
  2. CEFDINIR [Suspect]
     Active Substance: CEFDINIR
     Indication: Coronavirus infection
     Dosage: 0.1 G, 3X/DAY
     Route: 048
     Dates: start: 20240828, end: 20240830
  3. CEFDINIR [Suspect]
     Active Substance: CEFDINIR
     Indication: Hypertension
  4. CEFDINIR [Suspect]
     Active Substance: CEFDINIR
     Indication: Pneumonia

REACTIONS (2)
  - Rash erythematous [Recovering/Resolving]
  - Pruritus [Recovering/Resolving]

NARRATIVE: CASE EVENT DATE: 20240829
